FAERS Safety Report 4862695-8 (Version None)
Quarter: 2005Q4

REPORT INFORMATION
  Report Type: 
  Country: None (occurrence: None)
  Receive Date: 20051221
  Receipt Date: 20050902
  Transmission Date: 20060501
  Serious: Yes (Death)
  Sender: FDA-Public Use
  Company Number: US-MERCK-0509USA00761

PATIENT
  Age: 40 Year
  Sex: Male
  Weight: 86 kg

DRUGS (3)
  1. VIOXX [Suspect]
     Indication: MUSCLE INJURY
     Route: 048
     Dates: start: 20020101, end: 20030501
  2. VIOXX [Suspect]
     Indication: BURSITIS
     Route: 048
     Dates: start: 20020101, end: 20030501
  3. ULTRACET [Concomitant]
     Route: 065

REACTIONS (5)
  - ARRHYTHMIA [None]
  - ARTERIOSCLEROSIS [None]
  - CHEST PAIN [None]
  - MYOCARDIAL INFARCTION [None]
  - PAIN [None]
